FAERS Safety Report 7757731-5 (Version None)
Quarter: 2011Q3

REPORT INFORMATION
  Report Type: 
  Country: None (occurrence: None)
  Receive Date: 20110916
  Receipt Date: 20100909
  Transmission Date: 20111222
  Serious: No
  Sender: FDA-Public Use
  Company Number: US-ALLERGAN-1011667US

PATIENT
  Sex: Female

DRUGS (4)
  1. TIMOLOL MALEATE [Concomitant]
     Indication: GLAUCOMA
     Dosage: 1 GTT, QHS
     Route: 047
  2. OMNIPRED [Concomitant]
     Indication: POSTOPERATIVE CARE
     Dosage: 1 GTT, QID
     Route: 047
  3. ACUVAIL [Suspect]
     Indication: CATARACT OPERATION
     Dosage: 1 GTT, BID
     Route: 047
     Dates: start: 20100815
  4. ALPHAGAN P [Concomitant]

REACTIONS (1)
  - EYE PAIN [None]
